FAERS Safety Report 4509578-0 (Version None)
Quarter: 2004Q4

REPORT INFORMATION
  Report Type: 
  Country: None (occurrence: None)
  Receive Date: 20041119
  Receipt Date: 20041101
  Transmission Date: 20050328
  Serious: Yes (Disabling)
  Sender: FDA-Public Use
  Company Number: USA041182834

PATIENT
  Age: 65 Year
  Sex: Male

DRUGS (3)
  1. HUMULIN R [Suspect]
  2. HUMULIN N [Suspect]
  3. LANTUS [Concomitant]

REACTIONS (1)
  - ABASIA [None]
